FAERS Safety Report 9192550 (Version 1)
Quarter: 2013Q1

REPORT INFORMATION
  Report Type: Spontaneous
  Country: GB (occurrence: GB)
  Receive Date: 20130327
  Receipt Date: 20130327
  Transmission Date: 20140127
  Serious: Yes (Other)
  Sender: FDA-Public Use
  Company Number: GB-MYLANLABS-2013S1006052

PATIENT
  Age: 62 Year
  Sex: Female
  Weight: 70 kg

DRUGS (2)
  1. AMLODIPINE [Suspect]
     Indication: HYPERTENSION
     Dates: start: 20130122, end: 20130218
  2. OLMETEC [Concomitant]
     Indication: HYPERTENSION

REACTIONS (10)
  - Anxiety [Recovering/Resolving]
  - Dyspnoea [Recovering/Resolving]
  - Depressed mood [Recovering/Resolving]
  - Asthenia [Recovering/Resolving]
  - Miliaria [Recovering/Resolving]
  - Hot flush [Recovering/Resolving]
  - Dyspepsia [Recovering/Resolving]
  - Listless [Recovering/Resolving]
  - Joint swelling [Recovering/Resolving]
  - Gait disturbance [Recovering/Resolving]
